FAERS Safety Report 5006609-9 (Version None)
Quarter: 2006Q2

REPORT INFORMATION
  Report Type: 
  Country: None (occurrence: None)
  Receive Date: 20060519
  Receipt Date: 20060413
  Transmission Date: 20061013
  Serious: Yes (Hospitalization)
  Sender: FDA-Public Use
  Company Number: JP-JPN-A200601249

PATIENT
  Age: 70 Year
  Sex: Female

DRUGS (7)
  1. ZANTAC [Suspect]
     Indication: DRUG USE FOR UNKNOWN INDICATION
     Route: 048
     Dates: start: 20060301, end: 20060304
  2. NIPOLAZIN [Concomitant]
     Route: 048
     Dates: start: 20060301, end: 20060304
  3. UNSPECIFIED MEDICATION [Concomitant]
     Route: 048
     Dates: start: 20060301, end: 20060301
  4. SERMION [Concomitant]
     Route: 048
  5. SELBEX [Concomitant]
     Route: 048
  6. DIPHENHYDRAMINE HYDROCHLORIDE [Concomitant]
     Route: 065
     Dates: start: 20060301
  7. COLD MEDICATION [Concomitant]
     Route: 065

REACTIONS (3)
  - HEPATITIS FULMINANT [None]
  - LIVER DISORDER [None]
  - MALAISE [None]
